FAERS Safety Report 8347873-8 (Version None)
Quarter: 2012Q2

REPORT INFORMATION
  Report Type: 
  Country: None (occurrence: None)
  Receive Date: 20120509
  Receipt Date: 20120426
  Transmission Date: 20120825
  Serious: Yes (Other)
  Sender: FDA-Public Use
  Company Number: US-ELI_LILLY_AND_COMPANY-US201205000682

PATIENT
  Age: 83 Year
  Sex: Female

DRUGS (2)
  1. FORTEO [Suspect]
     Dosage: UNK, UNKNOWN
     Dates: end: 20120425
  2. FORTEO [Suspect]
     Dosage: UNK, UNKNOWN
     Dates: start: 20090601

REACTIONS (4)
  - AGE-RELATED MACULAR DEGENERATION [None]
  - HEARING IMPAIRED [None]
  - DRUG DOSE OMISSION [None]
  - INCORRECT DRUG ADMINISTRATION DURATION [None]
